FAERS Safety Report 4357735-9 (Version None)
Quarter: 2004Q2

REPORT INFORMATION
  Report Type: 
  Country: None (occurrence: None)
  Receive Date: 20040511
  Receipt Date: 20040504
  Transmission Date: 20050107
  Serious: Yes (Death)
  Sender: FDA-Public Use
  Company Number: HQWYE713305MAY04

PATIENT
  Age: 49 Year
  Sex: Male

DRUGS (3)
  1. RAPAMUNE [Suspect]
     Indication: IMMUNOSUPPRESSION
     Dosage: VARIABLE DOSE BASED ON DRUG TROUGH LEVEL
     Route: 048
     Dates: start: 20021213, end: 20030610
  2. PROGRAF [Suspect]
     Indication: IMMUNOSUPPRESSION
     Dosage: VARIABLE DOSE BASED ON DRUG TROUGH LEVEL
     Route: 048
     Dates: start: 20021213, end: 20030610
  3. PREDNISONE [Concomitant]

REACTIONS (8)
  - DIARRHOEA [None]
  - EPSTEIN-BARR VIRUS INFECTION [None]
  - LARGE INTESTINAL ULCER [None]
  - LUNG INFILTRATION [None]
  - LYMPHOPROLIFERATIVE DISORDER [None]
  - MULTI-ORGAN FAILURE [None]
  - PNEUMONIA [None]
  - PYREXIA [None]
